FAERS Safety Report 19996528 (Version 1)
Quarter: 2021Q4

REPORT INFORMATION
  Report Type: Spontaneous
  Country: US (occurrence: US)
  Receive Date: 20211026
  Receipt Date: 20211026
  Transmission Date: 20220303
  Serious: No
  Sender: FDA-Public Use
  Company Number: US-JNJFOC-20211036465

PATIENT
  Age: 72 Year
  Sex: Male

DRUGS (2)
  1. IMODIUM A-D [Suspect]
     Active Substance: LOPERAMIDE HYDROCHLORIDE
     Indication: Diarrhoea
     Dosage: TOOK IT ONCE TODAY
     Route: 048
     Dates: start: 20191016
  2. IMODIUM A-D [Suspect]
     Active Substance: LOPERAMIDE HYDROCHLORIDE
     Indication: Flatulence

REACTIONS (4)
  - Expired product administered [Unknown]
  - Gastrointestinal sounds abnormal [Not Recovered/Not Resolved]
  - Extra dose administered [Unknown]
  - Diarrhoea [Unknown]

NARRATIVE: CASE EVENT DATE: 20210101
